FAERS Safety Report 10827193 (Version 2)
Quarter: 2016Q1

REPORT INFORMATION
  Report Type: Report from Study
  Country: US (occurrence: US)
  Receive Date: 20150219
  Receipt Date: 20160125
  Transmission Date: 20160525
  Serious: No
  Sender: FDA-Public Use
  Company Number: US-ABBVIE-14K-163-1321361-00

PATIENT
  Age: 19 Year
  Sex: Female
  Weight: 56.75 kg

DRUGS (6)
  1. IMURAN [Concomitant]
     Active Substance: AZATHIOPRINE
     Indication: PRODUCT USED FOR UNKNOWN INDICATION
  2. HUMIRA [Suspect]
     Active Substance: ADALIMUMAB
     Route: 065
     Dates: start: 201409
  3. ZYRTEC [Concomitant]
     Active Substance: CETIRIZINE HYDROCHLORIDE
     Indication: PRODUCT USED FOR UNKNOWN INDICATION
  4. HUMIRA [Suspect]
     Active Substance: ADALIMUMAB
     Indication: CROHN^S DISEASE
     Route: 065
     Dates: start: 201407, end: 201407
  5. HUMIRA [Suspect]
     Active Substance: ADALIMUMAB
     Route: 065
     Dates: start: 201407, end: 201407
  6. HUMIRA [Suspect]
     Active Substance: ADALIMUMAB
     Route: 065
     Dates: start: 201408, end: 201409

REACTIONS (19)
  - Feeling hot [Unknown]
  - Rash pustular [Not Recovered/Not Resolved]
  - Hypersensitivity [Unknown]
  - Blister [Recovered/Resolved]
  - Injection site erythema [Unknown]
  - Urticaria [Unknown]
  - Epistaxis [Unknown]
  - Fear [Unknown]
  - Drug ineffective [Recovered/Resolved]
  - Impaired healing [Recovered/Resolved]
  - Sinus disorder [Unknown]
  - Cough [Unknown]
  - Rash papular [Unknown]
  - Diarrhoea [Recovered/Resolved]
  - Nail infection [Not Recovered/Not Resolved]
  - Sinusitis [Not Recovered/Not Resolved]
  - Nasal dryness [Unknown]
  - Injection site papule [Unknown]
  - Ear infection [Not Recovered/Not Resolved]

NARRATIVE: CASE EVENT DATE: 2014
